FAERS Safety Report 12093619 (Version 1)
Quarter: 2016Q1

REPORT INFORMATION
  Report Type: Spontaneous
  Country: FR (occurrence: None)
  Receive Date: 20160217
  Receipt Date: 20160217
  Transmission Date: 20160526
  Serious: Yes (Life-Threatening, Hospitalization)
  Sender: FDA-Public Use
  Company Number: 2016-02872

PATIENT
  Age: 38 Year
  Sex: Female

DRUGS (5)
  1. NAPROXEN (UNKNOWN) (NAPROXEN) UNK, UNKUNK [Suspect]
     Active Substance: NAPROXEN
     Indication: PRODUCT USED FOR UNKNOWN INDICATION
     Dosage: 26 G, TOTAL ORAL
     Route: 048
  2. ACEBUTOLOL [Concomitant]
     Active Substance: ACEBUTOLOL
  3. ZOPICLONE [Concomitant]
     Active Substance: ZOPICLONE
  4. OXAZEPAM. [Concomitant]
     Active Substance: OXAZEPAM
  5. CITALOPRAM [Concomitant]
     Active Substance: CITALOPRAM HYDROBROMIDE

REACTIONS (5)
  - Cardiac disorder [None]
  - Metabolic acidosis [None]
  - Toxicity to various agents [None]
  - Coagulopathy [None]
  - Overdose [None]
